FAERS Safety Report 19031301 (Version 1)
Quarter: 2021Q1

REPORT INFORMATION
  Report Type: Report from Study
  Country: DE (occurrence: DE)
  Receive Date: 20210319
  Receipt Date: 20210319
  Transmission Date: 20210420
  Serious: Yes (Hospitalization)
  Sender: FDA-Public Use
  Company Number: DE-TAKEDA-2020TUS057682

PATIENT
  Age: 58 Year
  Sex: Female
  Weight: 125 kg

DRUGS (18)
  1. PARATHYROID HORMONE [Suspect]
     Active Substance: PARATHYROID HORMONE
     Dosage: 50 MICROGRAM, QD
     Route: 058
     Dates: start: 20201202, end: 20210215
  2. CALCITRIOL. [Concomitant]
     Active Substance: CALCITRIOL
     Indication: HYPOPARATHYROIDISM
     Dosage: 0.25 MICROGRAM, QD
     Route: 048
     Dates: start: 20210204
  3. PARATHYROID HORMONE [Suspect]
     Active Substance: PARATHYROID HORMONE
     Indication: HYPOPARATHYROIDISM
     Dosage: 50 MICROGRAM, QD
     Route: 058
     Dates: start: 20201202
  4. PARATHYROID HORMONE [Suspect]
     Active Substance: PARATHYROID HORMONE
     Dosage: 75 MICROGRAM, QD
     Route: 058
     Dates: start: 20201202, end: 20210308
  5. PARATHYROID HORMONE [Suspect]
     Active Substance: PARATHYROID HORMONE
     Indication: HYPOPARATHYROIDISM
     Dosage: 50 MICROGRAM, QD
     Route: 058
     Dates: start: 20201202
  6. METOHEXAL [METOPROLOL TARTRATE] [Concomitant]
     Active Substance: METOPROLOL TARTRATE
     Indication: HYPERTONIA
     Dosage: 25 MILLIGRAM, BID
     Route: 065
  7. METOHEXAL [METOPROLOL TARTRATE] [Concomitant]
     Active Substance: METOPROLOL TARTRATE
     Indication: HYPERTENSION
  8. PARATHYROID HORMONE [Suspect]
     Active Substance: PARATHYROID HORMONE
     Indication: HYPOPARATHYROIDISM
     Dosage: 50 MICROGRAM, QD
     Route: 058
     Dates: start: 20201202
  9. PARATHYROID HORMONE [Suspect]
     Active Substance: PARATHYROID HORMONE
     Dosage: 50 MICROGRAM, QD
     Route: 058
     Dates: start: 20201202, end: 20210215
  10. PARATHYROID HORMONE [Suspect]
     Active Substance: PARATHYROID HORMONE
     Dosage: 75 MICROGRAM, QD
     Route: 058
     Dates: start: 20201202, end: 20210308
  11. CALCITRIOL. [Concomitant]
     Active Substance: CALCITRIOL
     Indication: HYPERPARATHYROIDISM PRIMARY
     Dosage: 0.25 MICROGRAM, BID
     Route: 048
  12. ORENCIA [Concomitant]
     Active Substance: ABATACEPT
     Indication: RHEUMATOID ARTHRITIS
     Dosage: UNK UNK, 1/WEEK
     Route: 058
  13. CALCIUM [Concomitant]
     Active Substance: CALCIUM
     Indication: HYPERPARATHYROIDISM PRIMARY
     Dosage: 600 MILLIGRAM, BID
     Route: 065
     Dates: start: 20210208
  14. PARATHYROID HORMONE [Suspect]
     Active Substance: PARATHYROID HORMONE
     Dosage: 50 MICROGRAM, QD
     Route: 058
     Dates: start: 20201202, end: 20210215
  15. PARATHYROID HORMONE [Suspect]
     Active Substance: PARATHYROID HORMONE
     Dosage: 75 MICROGRAM, QD
     Route: 058
     Dates: start: 20201202, end: 20210308
  16. CALCIUM [Concomitant]
     Active Substance: CALCIUM
     Indication: HYPOPARATHYROIDISM
  17. RAMIPRIL. [Concomitant]
     Active Substance: RAMIPRIL
     Indication: HYPERTONIA
     Dosage: 5 MILLIGRAM, QD
     Route: 048
  18. RAMIPRIL. [Concomitant]
     Active Substance: RAMIPRIL
     Indication: HYPERTENSION

REACTIONS (8)
  - Oropharyngeal pain [Not Recovered/Not Resolved]
  - Muscle spasms [Recovered/Resolved]
  - Pyrexia [Recovered/Resolved]
  - Rash [Recovered/Resolved]
  - COVID-19 [Not Recovered/Not Resolved]
  - Sensory disturbance [Recovered/Resolved]
  - Cough [Not Recovered/Not Resolved]
  - Headache [Recovered/Resolved]

NARRATIVE: CASE EVENT DATE: 20201205
